FAERS Safety Report 4521256-0 (Version None)
Quarter: 2004Q4

REPORT INFORMATION
  Report Type: 
  Country: None (occurrence: None)
  Receive Date: 20041208
  Receipt Date: 20041130
  Transmission Date: 20050328
  Serious: Yes (Hospitalization)
  Sender: FDA-Public Use
  Company Number: US-JNJFOC-20041200360

PATIENT
  Age: 80 Year
  Sex: Male

DRUGS (5)
  1. ULTRACET [Suspect]
     Indication: PAIN
     Route: 049
  2. ULTRACET [Suspect]
     Indication: OSTEOARTHRITIS
     Dosage: 12-16 DAILY
     Route: 049
  3. BETA BLOCKER [Concomitant]
  4. CALCIUM CHANNEL BLOCKER [Concomitant]
  5. DIGOXIN [Concomitant]

REACTIONS (1)
  - VENTRICULAR TACHYCARDIA [None]
